FAERS Safety Report 5935693-0 (Version None)
Quarter: 2008Q4

REPORT INFORMATION
  Report Type: 
  Country: None (occurrence: None)
  Receive Date: 20081030
  Receipt Date: 20081017
  Transmission Date: 20090506
  Serious: Yes (Hospitalization, Other)
  Sender: FDA-Public Use
  Company Number: US-WATSON-2008-05834

PATIENT
  Sex: Female

DRUGS (2)
  1. FENTANYL-75 (WATSON LABORATORIES) [Suspect]
     Indication: PAIN
     Dosage: 1 PATCH, PRN
     Route: 062
     Dates: start: 20080501, end: 20080926
  2. HYDROCODONE BITARTRATE AND ACETAMINOPHEN [Concomitant]
     Indication: BREAKTHROUGH PAIN
     Dosage: 1-2 TABLET, PRN/DAY (7.5/325MG)
     Route: 048
     Dates: start: 20020101

REACTIONS (8)
  - BLOOD PRESSURE DECREASED [None]
  - BRONCHITIS [None]
  - DEPRESSED LEVEL OF CONSCIOUSNESS [None]
  - DISORIENTATION [None]
  - DRUG INEFFECTIVE [None]
  - HYPOXIA [None]
  - IRRITABILITY [None]
  - RESPIRATORY RATE DECREASED [None]
